FAERS Safety Report 4377396-2 (Version None)
Quarter: 2004Q2

REPORT INFORMATION
  Report Type: 
  Country: None (occurrence: None)
  Receive Date: 20040614
  Receipt Date: 20040614
  Transmission Date: 20050107
  Serious: Yes (Life-Threatening, Hospitalization)
  Sender: FDA-Public Use
  Company Number: None

PATIENT
  Age: 22 Year
  Sex: Female
  Weight: 63.05 kg

DRUGS (1)
  1. ORTHO EVRA [Suspect]
     Indication: CONTRACEPTION
     Dosage: PATCH CONSTANT TRANSDERMAL
     Route: 062
     Dates: start: 20030601, end: 20040329

REACTIONS (5)
  - CHEST PAIN [None]
  - JOINT INJURY [None]
  - LIVER DISORDER [None]
  - PULMONARY EMBOLISM [None]
  - THROMBOSIS [None]
